FAERS Safety Report 6033920-5 (Version None)
Quarter: 2009Q1

REPORT INFORMATION
  Report Type: 
  Country: None (occurrence: None)
  Receive Date: 20090108
  Receipt Date: 20081223
  Transmission Date: 20090719
  Serious: Yes (Death)
  Sender: FDA-Public Use
  Company Number: 000129

PATIENT
  Age: 49 Year
  Sex: Male

DRUGS (5)
  1. ALPRAZOLAM [Suspect]
  2. AMLODIPINE [Suspect]
  3. COCAINE [Suspect]
  4. AMPHETAMINE AND DEXTROAMPHETAMINE SALTS [Suspect]
  5. MARIJUANA [Suspect]

REACTIONS (1)
  - COMPLETED SUICIDE [None]
